FAERS Safety Report 23224895 (Version 1)
Quarter: 2023Q4

REPORT INFORMATION
  Report Type: Spontaneous
  Country: BG (occurrence: None)
  Receive Date: 20231124
  Receipt Date: 20231124
  Transmission Date: 20240109
  Serious: Yes (Other)
  Sender: FDA-Public Use
  Company Number: 2023A265128

PATIENT
  Age: 66 Year
  Sex: Male

DRUGS (4)
  1. IMFINZI [Suspect]
     Active Substance: DURVALUMAB
     Indication: Non-small cell lung cancer stage III
     Route: 042
  2. CARBOPLATIN [Concomitant]
     Active Substance: CARBOPLATIN
     Dosage: X4 CYCLES
  3. GEMCITABINE [Concomitant]
     Active Substance: GEMCITABINE
     Dosage: X4 CYCLES
  4. AFATINIB [Concomitant]
     Active Substance: AFATINIB
     Indication: Targeted cancer therapy

REACTIONS (1)
  - Malignant neoplasm progression [Unknown]
